FAERS Safety Report 19138834 (Version 1)
Quarter: 2021Q2

REPORT INFORMATION
  Report Type: Spontaneous
  Country: US (occurrence: US)
  Receive Date: 20210415
  Receipt Date: 20210415
  Transmission Date: 20210717
  Serious: Yes (Other)
  Sender: FDA-Public Use
  Company Number: US-AMGEN-USASP2021056083

PATIENT
  Age: 25 Year
  Sex: Female

DRUGS (3)
  1. SODIUM CHLORIDE. [Concomitant]
     Active Substance: SODIUM CHLORIDE
     Dosage: UNK
  2. IVABRADINE [Suspect]
     Active Substance: IVABRADINE
     Indication: SINUS TACHYCARDIA
     Dosage: UNK
     Route: 065
  3. ISOPROTERENOL [ISOPRENALINE] [Concomitant]
     Active Substance: ISOPROTERENOL
     Dosage: UNK

REACTIONS (5)
  - Postural orthostatic tachycardia syndrome [Not Recovered/Not Resolved]
  - Temperature intolerance [Recovering/Resolving]
  - Off label use [Unknown]
  - Ophthalmic migraine [Recovering/Resolving]
  - Urticaria chronic [Recovering/Resolving]
